FAERS Safety Report 19232414 (Version 1)
Quarter: 2021Q2

REPORT INFORMATION
  Report Type: Spontaneous
  Country: CA (occurrence: CA)
  Receive Date: 20210507
  Receipt Date: 20210507
  Transmission Date: 20210717
  Serious: Yes (Hospitalization)
  Sender: FDA-Public Use
  Company Number: CA-BAXTER-2021BAX008819

PATIENT
  Sex: Male

DRUGS (7)
  1. DIANEAL LOW CALCIUM PERITONEAL DIALYSIS SOLUTION WITH DEXTROSE [Suspect]
     Active Substance: CALCIUM CHLORIDE\DEXTROSE\MAGNESIUM CHLORIDE\SODIUM CHLORIDE\SODIUM LACTATE
     Indication: PERITONEAL DIALYSIS
     Route: 033
     Dates: start: 2020, end: 20210313
  2. EXTRANEAL [Suspect]
     Active Substance: CALCIUM CHLORIDE\ICODEXTRIN\MAGNESIUM CHLORIDE\SODIUM CHLORIDE\SODIUM LACTATE
     Indication: PERITONEAL DIALYSIS
     Dosage: DOSE RE?INTRODUCED, LAST FILL
     Route: 033
     Dates: start: 20210316
  3. DIANEAL LOW CALCIUM PERITONEAL DIALYSIS SOLUTION WITH DEXTROSE [Suspect]
     Active Substance: CALCIUM CHLORIDE\DEXTROSE\MAGNESIUM CHLORIDE\SODIUM CHLORIDE\SODIUM LACTATE
     Indication: PERITONEAL DIALYSIS
     Dosage: DOSE RE?INTRODUCED, FILL VOLUME OF 1000 ML AS NEEDED
     Route: 033
     Dates: start: 20210316
  4. HEPARIN SODIUM AND 0.9% SODIUM CHLORIDE INJECTION [Suspect]
     Active Substance: HEPARIN SODIUM\SODIUM CHLORIDE
     Indication: DRUG THERAPY
     Route: 033
  5. EXTRANEAL [Suspect]
     Active Substance: CALCIUM CHLORIDE\ICODEXTRIN\MAGNESIUM CHLORIDE\SODIUM CHLORIDE\SODIUM LACTATE
     Indication: PERITONEAL DIALYSIS
     Dosage: 2 BAGS DAILY, 2500ML DURING THE DAYTIME, DOSE DISCONTINUED
     Route: 033
     Dates: start: 2020, end: 20210313
  6. DIANEAL W/ DEXTROSE 2.5% [Suspect]
     Active Substance: CALCIUM CHLORIDE\DEXTROSE\MAGNESIUM CHLORIDE\SODIUM CHLORIDE\SODIUM LACTATE
     Indication: PERITONEAL DIALYSIS
     Dosage: DOSE DISCONTINUED
     Route: 033
     Dates: start: 2020, end: 20210313
  7. DIANEAL W/ DEXTROSE 2.5% [Suspect]
     Active Substance: CALCIUM CHLORIDE\DEXTROSE\MAGNESIUM CHLORIDE\SODIUM CHLORIDE\SODIUM LACTATE
     Indication: PERITONEAL DIALYSIS
     Dosage: 3 BAGS, DOSE RE?INTRODUCED
     Route: 033
     Dates: start: 20210316

REACTIONS (5)
  - Cough [Unknown]
  - Renal haemorrhage [Recovered/Resolved]
  - Inguinal hernia [Recovered/Resolved]
  - Peritonitis bacterial [Recovering/Resolving]
  - Peritoneal dialysis complication [Unknown]

NARRATIVE: CASE EVENT DATE: 20210313
